FAERS Safety Report 5766529-9 (Version None)
Quarter: 2008Q2

REPORT INFORMATION
  Report Type: 
  Country: None (occurrence: None)
  Receive Date: 20080612
  Receipt Date: 20080530
  Transmission Date: 20081010
  Serious: Yes (Hospitalization)
  Sender: FDA-Public Use
  Company Number: NL-ROCHE-566115

PATIENT
  Sex: Female

DRUGS (2)
  1. CAPECITABINE [Suspect]
     Indication: COLORECTAL CANCER
     Dosage: CYCLE 8, ARM B AS PER PROTOCOL
     Route: 048
     Dates: start: 20071122, end: 20080429
  2. OXALIPLATIN [Suspect]
     Indication: COLORECTAL CANCER
     Dosage: CYCLE 8, ARM B AS PER PROTOCOL
     Route: 042
     Dates: start: 20071122, end: 20080415

REACTIONS (1)
  - CHOLECYSTITIS [None]
